FAERS Safety Report 5748668-1 (Version None)
Quarter: 2008Q2

REPORT INFORMATION
  Report Type: 
  Country: None (occurrence: None)
  Receive Date: 20080521
  Receipt Date: 20080513
  Transmission Date: 20081010
  Serious: Yes (Death, Hospitalization, Other)
  Sender: FDA-Public Use
  Company Number: 028-2188008041074

PATIENT
  Age: 89 Year
  Sex: Female

DRUGS (1)
  1. REVLIMID [Suspect]
     Indication: MULTIPLE MYELOMA
     Dosage: 5 MG, OD X21 DAYS, ORAL
     Route: 048
     Dates: start: 20071101, end: 20080314

REACTIONS (12)
  - ASTHENIA [None]
  - BLOOD CREATININE INCREASED [None]
  - DECREASED APPETITE [None]
  - DYSPNOEA [None]
  - HAEMOGLOBIN DECREASED [None]
  - HAEMOPTYSIS [None]
  - INCREASED UPPER AIRWAY SECRETION [None]
  - LYMPHADENOPATHY [None]
  - NAUSEA [None]
  - PULMONARY HAEMORRHAGE [None]
  - RESPIRATORY FAILURE [None]
  - THROMBOCYTOPENIA [None]
